FAERS Safety Report 24613827 (Version 1)
Quarter: 2024Q4

REPORT INFORMATION
  Report Type: Spontaneous
  Country: US (occurrence: None)
  Receive Date: 20241113
  Receipt Date: 20241113
  Transmission Date: 20250115
  Serious: Yes (Disabling)
  Sender: Public
  Company Number: None

PATIENT
  Age: 31 Year
  Sex: Female
  Weight: 56.25 kg

DRUGS (9)
  1. MIRENA [Suspect]
     Active Substance: LEVONORGESTREL
     Indication: Contraception
     Dates: start: 20231130, end: 20240801
  2. MINOXIDIL [Concomitant]
     Active Substance: MINOXIDIL
  3. PROVIGIL [Concomitant]
     Active Substance: MODAFINIL
  4. HYDROXYCHLOROQUINE SULFATE [Concomitant]
     Active Substance: HYDROXYCHLOROQUINE SULFATE
  5. RITALIN [Concomitant]
     Active Substance: METHYLPHENIDATE HYDROCHLORIDE
  6. BUDESONIDE [Concomitant]
     Active Substance: BUDESONIDE
  7. ZYRTEC [Concomitant]
     Active Substance: CETIRIZINE HYDROCHLORIDE
  8. ALEVE [Concomitant]
     Active Substance: NAPROXEN SODIUM
  9. VITAMINS [Concomitant]
     Active Substance: VITAMINS

REACTIONS (2)
  - Migraine [None]
  - Adverse drug reaction [None]

NARRATIVE: CASE EVENT DATE: 20240112
